FAERS Safety Report 14838604 (Version 10)
Quarter: 2022Q2

REPORT INFORMATION
  Report Type: Spontaneous
  Country: US (occurrence: US)
  Receive Date: 20180502
  Receipt Date: 20220422
  Transmission Date: 20220721
  Serious: Yes (Other)
  Sender: FDA-Public Use
  Company Number: US-PFIZER INC-2018172603

PATIENT
  Age: 10 Year
  Sex: Male
  Weight: 41 kg

DRUGS (11)
  1. GENOTROPIN [Suspect]
     Active Substance: SOMATROPIN
     Indication: Neuroblastoma
     Dosage: 1.4 MG, DAILY AT NIGHT
     Route: 058
     Dates: start: 20180201
  2. GENOTROPIN [Suspect]
     Active Substance: SOMATROPIN
     Indication: Nausea
     Dosage: 1.0 MG, DAILY
     Route: 058
     Dates: start: 20180522
  3. GENOTROPIN [Suspect]
     Active Substance: SOMATROPIN
     Indication: Vomiting
     Dosage: 1.2 MG, DAILY
     Dates: start: 20180522
  4. GENOTROPIN [Suspect]
     Active Substance: SOMATROPIN
     Indication: Asthenia
     Dosage: 1.2 MG, DAILY
  5. GENOTROPIN [Suspect]
     Active Substance: SOMATROPIN
     Indication: Growth retardation
     Dosage: 1.6 MG, DAILY
  6. GENOTROPIN [Suspect]
     Active Substance: SOMATROPIN
     Dosage: 2 MG, DAILY
  7. ZOFRAN [Concomitant]
     Active Substance: ONDANSETRON HYDROCHLORIDE
     Indication: Vomiting
     Dosage: 8MG, EVERY 8 HOURS AS NEEDED
     Route: 048
     Dates: start: 20151217
  8. ZOFRAN [Concomitant]
     Active Substance: ONDANSETRON HYDROCHLORIDE
     Indication: Nausea
  9. SERTRALINE [Concomitant]
     Active Substance: SERTRALINE HYDROCHLORIDE
     Indication: Anxiety
     Dosage: 50 MG, DAILY
     Route: 048
     Dates: start: 20151217
  10. TOPIRAMATE [Concomitant]
     Active Substance: TOPIRAMATE
     Indication: Headache
     Dosage: 25 MG, DAILY HS
     Route: 048
     Dates: start: 20151217
  11. MAXALT [Concomitant]
     Active Substance: RIZATRIPTAN BENZOATE
     Indication: Migraine
     Dosage: 5MG SUBLINGUAL TABLETS TAKEN AS NEEDED
     Route: 060
     Dates: start: 20151217

REACTIONS (5)
  - Condition aggravated [Unknown]
  - Headache [Unknown]
  - Vomiting [Unknown]
  - Nausea [Unknown]
  - Product dose omission issue [Unknown]

NARRATIVE: CASE EVENT DATE: 20180304
